FAERS Safety Report 19689477 (Version 1)
Quarter: 2021Q3

REPORT INFORMATION
  Report Type: Spontaneous
  Country: GB (occurrence: GB)
  Receive Date: 20210812
  Receipt Date: 20210812
  Transmission Date: 20211014
  Serious: Yes (Other)
  Sender: FDA-Public Use
  Company Number: GB-TEVA-2021-GB-1940269

PATIENT
  Age: 54 Year
  Sex: Female
  Weight: 108 kg

DRUGS (14)
  1. AMLODIPINE [Concomitant]
     Active Substance: AMLODIPINE BESYLATE
     Dosage: 1 DOSAGE FORMS DAILY;
     Dates: start: 20210106
  2. DIHYDROCODEINE [Concomitant]
     Active Substance: DIHYDROCODEINE
     Dosage: TAKE ONE OR TWO TABLETS UP TO THREE TIMES A DAY...
     Dates: start: 20200917
  3. MEBEVERINE HYDROCHLORIDE [Concomitant]
     Active Substance: MEBEVERINE HYDROCHLORIDE
     Dosage: 2 DOSAGE FORMS DAILY;  PREFERABLY 20 MINU...
     Dates: start: 20210106
  4. VENLAFAXINE [Concomitant]
     Active Substance: VENLAFAXINE HYDROCHLORIDE
     Dosage: 1 DOSAGE FORMS DAILY; IN THE MORNING
     Dates: start: 20210106
  5. NOVOMIX [Concomitant]
     Active Substance: INSULIN ASPART
     Dosage: TWICE A DAY AS DIRECTED
     Dates: start: 20210106
  6. SALBUTAMOL [Concomitant]
     Active Substance: ALBUTEROL
     Dosage: 2 DF
     Route: 055
     Dates: start: 20210518, end: 20210707
  7. RAMIPRIL. [Concomitant]
     Active Substance: RAMIPRIL
     Dosage: 1 DOSAGE FORMS DAILY;  IN THE EVENING TO REDUCE BLOOD...
     Dates: start: 20210106
  8. LEVOFLOXACIN. [Suspect]
     Active Substance: LEVOFLOXACIN
     Dosage: 500 MG
     Dates: start: 20210706
  9. LEVOTHYROXINE. [Concomitant]
     Active Substance: LEVOTHYROXINE
     Dosage: 1 DOSAGE FORMS DAILY; IN THE MORNING
     Dates: start: 20201116
  10. SIMVASTATIN. [Concomitant]
     Active Substance: SIMVASTATIN
     Indication: BLOOD CHOLESTEROL INCREASED
     Dosage: 1 DOSAGE FORMS DAILY; AT NIGHT
     Dates: start: 20210106
  11. OLANZAPINE. [Concomitant]
     Active Substance: OLANZAPINE
     Dosage: 1 DOSAGE FORMS DAILY; IN THE EVENING
     Dates: start: 20210106
  12. PIZOTIFEN [Concomitant]
     Active Substance: PIZOTYLINE
     Indication: MIGRAINE PROPHYLAXIS
     Dosage: 1 DOSAGE FORMS DAILY; IN THE EVENING
     Dates: start: 20210106
  13. SUKKARTO [Concomitant]
     Active Substance: METFORMIN HYDROCHLORIDE
     Dosage: TAKE ONE TABLET IN THE MORNING AND TAKE TWO TAB...
     Dates: start: 20210106
  14. VITAMIN D3 [Concomitant]
     Active Substance: CHOLECALCIFEROL
     Dosage: 2 DOSAGE FORMS DAILY;
     Dates: start: 20210106

REACTIONS (3)
  - Hypoglycaemia [Recovered/Resolved]
  - Hyperglycaemia [Recovered/Resolved]
  - Blood glucose fluctuation [Recovered/Resolved]

NARRATIVE: CASE EVENT DATE: 20210706
